FAERS Safety Report 20562035 (Version 1)
Quarter: 2022Q1

REPORT INFORMATION
  Report Type: Spontaneous
  Country: US (occurrence: US)
  Receive Date: 20220307
  Receipt Date: 20220307
  Transmission Date: 20220423
  Serious: No
  Sender: FDA-Public Use
  Company Number: US-PFIZER INC-2021708850

PATIENT
  Age: 75 Year
  Sex: Female
  Weight: 70.76 kg

DRUGS (1)
  1. IBRANCE [Suspect]
     Active Substance: PALBOCICLIB
     Indication: Bone cancer
     Dosage: 125MG ONE TIME A DAY

REACTIONS (2)
  - Blood glucose increased [Unknown]
  - Off label use [Unknown]
